FAERS Safety Report 7178747-6 (Version None)
Quarter: 2010Q4

REPORT INFORMATION
  Report Type: 
  Country: None (occurrence: None)
  Receive Date: 20101221
  Receipt Date: 20101208
  Transmission Date: 20110411
  Serious: Yes (Hospitalization, Other)
  Sender: FDA-Public Use
  Company Number: US-ELI_LILLY_AND_COMPANY-US201010001756

PATIENT
  Sex: Female
  Weight: 70.748 kg

DRUGS (13)
  1. FORTEO [Suspect]
     Indication: OSTEOPOROSIS
     Dosage: 20 UG, DAILY (1/D)
     Dates: end: 20101006
  2. NORVASC [Concomitant]
     Dosage: 5 MG, DAILY (1/D)
  3. PROSEK [Concomitant]
     Dosage: 50 MG, UNK
  4. IMDUR [Concomitant]
     Dosage: 30 MG, DAILY (1/D)
  5. BENICAR HCT [Concomitant]
     Dosage: 40 MG/12.5 MG, UNK
  6. TOPROL-XL [Concomitant]
     Dosage: 50 MG, 2/D
  7. NEXIUM [Concomitant]
     Dosage: 40 MG, 2/D
  8. ASPIRIN [Concomitant]
     Dosage: 125 MG, 2/D
  9. VITAMIN D [Concomitant]
  10. FOLIC ACID [Concomitant]
  11. LOVAZA [Concomitant]
     Dosage: 1000 MG, 2/D
  12. CRESTOR [Concomitant]
     Dosage: 10 MG, DAILY (1/D)
  13. CLINDAMYCIN                        /00166001/ [Concomitant]
     Indication: PROPHYLAXIS

REACTIONS (4)
  - ANAEMIA POSTOPERATIVE [None]
  - CORONARY ARTERY DISEASE [None]
  - HYPERGLYCAEMIA [None]
  - OSTEOARTHRITIS [None]
